FAERS Safety Report 15183647 (Version 2)
Quarter: 2018Q3

REPORT INFORMATION
  Report Type: Spontaneous
  Country: US (occurrence: US)
  Receive Date: 20180723
  Receipt Date: 20180726
  Transmission Date: 20181010
  Serious: Yes (Life-Threatening)
  Sender: FDA-Public Use
  Company Number: US-PFIZER INC-2018295261

PATIENT
  Age: 42 Month
  Weight: 15 kg

DRUGS (2)
  1. AMINET (AMINOPHYLLINE\BENZOCAINE\PENTOBARBITAL) [Suspect]
     Active Substance: AMINOPHYLLINE\BENZOCAINE\PENTOBARBITAL
     Indication: BRONCHITIS
  2. AMINET (AMINOPHYLLINE\BENZOCAINE\PENTOBARBITAL) [Suspect]
     Active Substance: AMINOPHYLLINE\BENZOCAINE\PENTOBARBITAL
     Indication: ASTHMA
     Dosage: (AMINOPHYLLINE 0.25/PENTOBARBITAL 0.05/BENZOCAINE 0.02)
     Route: 054

REACTIONS (4)
  - Hypotonia [Recovering/Resolving]
  - Pallor [Recovering/Resolving]
  - Toxicity to various agents [Unknown]
  - Tachycardia [Recovering/Resolving]
